FAERS Safety Report 5453455-8 (Version None)
Quarter: 2007Q4

REPORT INFORMATION
  Report Type: 
  Country: None (occurrence: None)
  Receive Date: 20070913
  Receipt Date: 20070906
  Transmission Date: 20080405
  Serious: Yes (Congenital Anomaly)
  Sender: FDA-Public Use
  Company Number: 2005-09-0996

PATIENT
  Weight: 4.4 kg

DRUGS (2)
  1. PEG-INTRON [Suspect]
     Indication: HEPATITIS C
     Dates: start: 20050511, end: 20050518
  2. REBETOL [Suspect]
     Indication: HEPATITIS C
     Dosage: QD; PO
     Route: 048
     Dates: start: 20050511, end: 20050524

REACTIONS (3)
  - CONGENITAL HYDRONEPHROSIS [None]
  - DRUG EXPOSURE DURING PREGNANCY [None]
  - TRANSMISSION OF DRUG VIA SEMEN [None]
